FAERS Safety Report 4571654-4 (Version None)
Quarter: 2005Q1

REPORT INFORMATION
  Report Type: 
  Country: None (occurrence: None)
  Receive Date: 20050207
  Receipt Date: 20041202
  Transmission Date: 20050727
  Serious: Yes (Other)
  Sender: FDA-Public Use
  Company Number: PHEH2004US12937

PATIENT
  Age: 90 Year
  Sex: Female
  Weight: 29 kg

DRUGS (3)
  1. MIACALCIN [Suspect]
  2. CALCIUM GLUCONATE [Concomitant]
  3. VITAMIN D [Concomitant]

REACTIONS (7)
  - CHRONIC OBSTRUCTIVE PULMONARY DISEASE [None]
  - CONFUSIONAL STATE [None]
  - FEELING ABNORMAL [None]
  - GLAUCOMA [None]
  - HYPOGLYCAEMIA [None]
  - HYPOTHYROIDISM [None]
  - PERNICIOUS ANAEMIA [None]
